APPROVED DRUG PRODUCT: ATRIDOX
Active Ingredient: DOXYCYCLINE HYCLATE
Strength: 50MG
Dosage Form/Route: SYSTEM, EXTENDED RELEASE;PERIODONTAL
Application: N050751 | Product #001
Applicant: DEN-MAT HOLDINGS LLC
Approved: Sep 3, 1998 | RLD: Yes | RS: No | Type: DISCN